FAERS Safety Report 6612194-8 (Version None)
Quarter: 2010Q1

REPORT INFORMATION
  Report Type: 
  Country: None (occurrence: None)
  Receive Date: 20100302
  Receipt Date: 20100302
  Transmission Date: 20100710
  Serious: Yes (Hospitalization, Other)
  Sender: FDA-Public Use
  Company Number: None

PATIENT
  Age: 61 Year
  Sex: Female
  Weight: 52.1637 kg

DRUGS (2)
  1. REMICADE [Suspect]
     Indication: COLITIS ULCERATIVE
     Dosage: REMICADE IV EVERY 8 WEEKS IV DRIP
     Route: 041
     Dates: start: 20091016, end: 20100216
  2. ISONIAZID TAB [Suspect]
     Dosage: 3000MG EVERY DAY PO
     Route: 048
     Dates: start: 20090927, end: 20100119

REACTIONS (11)
  - ABASIA [None]
  - ARTHRALGIA [None]
  - DRUG HYPERSENSITIVITY [None]
  - JOINT STIFFNESS [None]
  - MOVEMENT DISORDER [None]
  - MUSCULOSKELETAL STIFFNESS [None]
  - MYALGIA [None]
  - PYREXIA [None]
  - RASH GENERALISED [None]
  - SERUM SICKNESS [None]
  - URTICARIA [None]
